FAERS Safety Report 25482671 (Version 1)
Quarter: 2025Q2

REPORT INFORMATION
  Report Type: Other
  Country: US (occurrence: US)
  Receive Date: 20250626
  Receipt Date: 20250626
  Transmission Date: 20250717
  Serious: No
  Sender: TIME CAPS
  Company Number: US-Time-Cap Labs, Inc.-2179431

PATIENT

DRUGS (1)
  1. DOCUSATE SODIUM - SENNOSIDES [Suspect]
     Active Substance: DOCUSATE SODIUM\SENNOSIDES
     Indication: Product used for unknown indication

REACTIONS (1)
  - Therapeutic product effect increased [Unknown]
